FAERS Safety Report 15795641 (Version 2)
Quarter: 2019Q3

REPORT INFORMATION
  Report Type: Spontaneous
  Country: US (occurrence: US)
  Receive Date: 20190107
  Receipt Date: 20190812
  Transmission Date: 20191004
  Serious: No
  Sender: FDA-Public Use
  Company Number: US-MYLANLABS-2018M1093998

PATIENT
  Sex: Male
  Weight: 113 kg

DRUGS (3)
  1. SIMVASTATIN. [Concomitant]
     Active Substance: SIMVASTATIN
  2. VITAMINS                           /00067501/ [Concomitant]
     Active Substance: VITAMINS
  3. LEVOTHYROXINE SODIUM TABLETS, USP [Suspect]
     Active Substance: LEVOTHYROXINE SODIUM
     Indication: HYPOTHYROIDISM
     Dosage: UNK 150
     Route: 048
     Dates: start: 201704

REACTIONS (4)
  - Weight loss poor [Not Recovered/Not Resolved]
  - Asthenia [Recovering/Resolving]
  - Apathy [Not Recovered/Not Resolved]
  - Blood thyroid stimulating hormone abnormal [Not Recovered/Not Resolved]
